FAERS Safety Report 7827479-7 (Version None)
Quarter: 2011Q4

REPORT INFORMATION
  Report Type: 
  Country: None (occurrence: None)
  Receive Date: 20111018
  Receipt Date: 20111004
  Transmission Date: 20120403
  Serious: Yes (Life-Threatening, Other)
  Sender: FDA-Public Use
  Company Number: MC201100400

PATIENT

DRUGS (3)
  1. ANGIOMAX [Suspect]
     Indication: PERCUTANEOUS CORONARY INTERVENTION
     Dosage: STANDARD, BOLUS, INTRAVENOUS
     Route: 040
  2. REOPRO [Concomitant]
  3. PLAVIX [Concomitant]

REACTIONS (3)
  - RETROPERITONEAL HAEMATOMA [None]
  - CARDIAC ARREST [None]
  - VESSEL PERFORATION [None]
